FAERS Safety Report 9102949 (Version 2)
Quarter: 2013Q1

REPORT INFORMATION
  Report Type: Spontaneous
  Country: SK (occurrence: SK)
  Receive Date: 20130219
  Receipt Date: 20130305
  Transmission Date: 20140127
  Serious: Yes (Hospitalization, Other)
  Sender: FDA-Public Use
  Company Number: SK-PFIZER INC-2013060794

PATIENT
  Age: 75 Year
  Sex: Male

DRUGS (2)
  1. SUTENT [Suspect]
  2. VOTRIENT [Concomitant]

REACTIONS (3)
  - Accelerated hypertension [Recovering/Resolving]
  - Disease progression [Unknown]
  - Neoplasm malignant [Unknown]
